FAERS Safety Report 4773030-8 (Version None)
Quarter: 2005Q3

REPORT INFORMATION
  Report Type: 
  Country: None (occurrence: None)
  Receive Date: 20050916
  Receipt Date: 20050831
  Transmission Date: 20060218
  Serious: Yes (Hospitalization)
  Sender: FDA-Public Use
  Company Number: 2005EU001986

PATIENT
  Age: 55 Year
  Sex: Female

DRUGS (10)
  1. FK506(TACROLIMUS) CAPSULE [Suspect]
     Indication: LIVER TRANSPLANT
     Dosage: 3.00 MG, UID/QD, ORAL
     Route: 048
     Dates: start: 20040921
  2. MYCOPHENOLATE MOFETIL (MYCOPHENOLATE MOFETIL) [Suspect]
     Indication: LIVER TRANSPLANT
     Dosage: SEE IMAGE
     Dates: start: 20040921, end: 20040925
  3. MYCOPHENOLATE MOFETIL (MYCOPHENOLATE MOFETIL) [Suspect]
     Indication: LIVER TRANSPLANT
     Dosage: SEE IMAGE
     Dates: start: 20040926
  4. PREDNISONE [Suspect]
     Indication: LIVER TRANSPLANT
     Dosage: 5.00 MG, UID/QD
     Dates: start: 20040921, end: 20050628
  5. INSULIN [Concomitant]
  6. ANTICOAGULANT CITRATE DEXTROSE (ANTICOAGULANT CITRATE DEXTROSE) [Concomitant]
  7. IMMUNE GLOBULIN INTRAVENOUS (HUMAN) [Concomitant]
  8. LAMIVUDINE [Concomitant]
  9. WARFARIN SODIUM [Concomitant]
  10. TAZOCEL (PIPERACILLIN SODIUM, TAZOBACTAM SODIUM) [Concomitant]

REACTIONS (2)
  - HEPATIC VEIN STENOSIS [None]
  - RENAL FAILURE [None]
